FAERS Safety Report 6342107-8 (Version None)
Quarter: 2009Q3

REPORT INFORMATION
  Report Type: 
  Country: None (occurrence: None)
  Receive Date: 20090903
  Receipt Date: 20090903
  Transmission Date: 20100115
  Serious: Yes (Other)
  Sender: FDA-Public Use
  Company Number: None

PATIENT
  Age: 39 Year
  Sex: Male
  Weight: 87.5442 kg

DRUGS (1)
  1. LEVAQUIN [Suspect]
     Indication: INFECTION
     Dosage: ONCE/DAY PO
     Route: 048
     Dates: start: 20090808, end: 20090814

REACTIONS (4)
  - ANAEMIA [None]
  - CONTUSION [None]
  - PAIN [None]
  - TENDON RUPTURE [None]
